FAERS Safety Report 17926988 (Version 1)
Quarter: 2020Q2

REPORT INFORMATION
  Report Type: Spontaneous
  Country: US (occurrence: US)
  Receive Date: 20200621
  Receipt Date: 20200621
  Transmission Date: 20200714
  Serious: No
  Sender: FDA-Public Use
  Company Number: None

PATIENT
  Age: 71 Year
  Sex: Male

DRUGS (1)
  1. POTASSIUM CHLORIDE. [Suspect]
     Active Substance: POTASSIUM CHLORIDE
     Indication: HYPOKALAEMIA
     Route: 048
     Dates: start: 20130214, end: 20191008

REACTIONS (6)
  - Chest pain [None]
  - Nausea [None]
  - Hyperkalaemia [None]
  - Chest discomfort [None]
  - Oesophagitis [None]
  - Eructation [None]

NARRATIVE: CASE EVENT DATE: 20191008
